FAERS Safety Report 6403975-4 (Version None)
Quarter: 2009Q4

REPORT INFORMATION
  Report Type: 
  Country: None (occurrence: None)
  Receive Date: 20091016
  Receipt Date: 20090713
  Transmission Date: 20100525
  Serious: No
  Sender: FDA-Public Use
  Company Number: US-ALEXION-A200900367

PATIENT
  Sex: Male

DRUGS (15)
  1. SOLIRIS [Suspect]
     Indication: PAROXYSMAL NOCTURNAL HAEMOGLOBINURIA
     Dosage: 600 MG, QWK X4
     Route: 042
     Dates: start: 20090318, end: 20090408
  2. SOLIRIS [Suspect]
     Dosage: 600 MG, QW X4
     Route: 042
     Dates: start: 20090507, end: 20090501
  3. SOLIRIS [Suspect]
     Dosage: 900 MG, Q2W
     Dates: start: 20090601
  4. VICODIN [Concomitant]
     Dosage: UNK
     Route: 048
     Dates: end: 20090301
  5. POTASSIUM CHLORIDE [Concomitant]
     Dosage: UNK
     Route: 048
  6. PREDNISONE [Concomitant]
     Dosage: UNK
     Route: 048
     Dates: end: 20090201
  7. BENAZEPRIL HYDROCHLORIDE [Concomitant]
     Dosage: 40 MG, UNK
     Route: 048
  8. DIOVAN                             /01319601/ [Concomitant]
     Dosage: 320 MG, UNK
     Route: 048
  9. FOLIC ACID [Concomitant]
     Dosage: 1 MG, UNK
     Route: 048
  10. FUROSEMIDE [Concomitant]
     Dosage: 40 MG, QAM
     Route: 048
  11. LOTENSIN                           /00909102/ [Concomitant]
     Route: 048
  12. METOPROLOL [Concomitant]
     Dosage: 100 MG, UNK
     Route: 048
  13. NIFEDIAC CC [Concomitant]
     Dosage: 90 MG, UNK
     Route: 048
  14. NORVASC [Concomitant]
     Dosage: UNK
     Route: 048
  15. POTASSIUM CHLORIDE [Concomitant]
     Dosage: 20 MEQ, QD
     Route: 048

REACTIONS (9)
  - BLOOD PRESSURE ABNORMAL [None]
  - CHEST DISCOMFORT [None]
  - DECREASED APPETITE [None]
  - DYSPNOEA [None]
  - FATIGUE [None]
  - HAEMATURIA [None]
  - NAUSEA [None]
  - OEDEMA PERIPHERAL [None]
  - PAIN IN EXTREMITY [None]
